FAERS Safety Report 6549548-4 (Version None)
Quarter: 2010Q1

REPORT INFORMATION
  Report Type: 
  Country: None (occurrence: None)
  Receive Date: 20100125
  Receipt Date: 20100120
  Transmission Date: 20100710
  Serious: No
  Sender: FDA-Public Use
  Company Number: US-ROXANE LABORATORIES, INC.-2010-RO-00083RO

PATIENT
  Sex: Female

DRUGS (1)
  1. FLUTICASONE [Suspect]
     Dates: start: 20091007, end: 20100102

REACTIONS (3)
  - EPISTAXIS [None]
  - MUCOSAL INFLAMMATION [None]
  - RHINALGIA [None]
